FAERS Safety Report 5459792-5 (Version None)
Quarter: 2007Q3

REPORT INFORMATION
  Report Type: 
  Country: None (occurrence: None)
  Receive Date: 20070919
  Receipt Date: 20070912
  Transmission Date: 20080115
  Serious: Yes (Hospitalization)
  Sender: FDA-Public Use
  Company Number: DK-ROCHE-474302

PATIENT
  Age: 69 Year
  Sex: Male
  Weight: 77 kg

DRUGS (10)
  1. CAPECITABINE [Suspect]
     Indication: GASTRIC CANCER
     Dosage: GIVEN ON DAY ONE TO FOURTEEN EVERY THREE WEEKS.
     Route: 048
     Dates: start: 20061115
  2. TRASTUZUMAB [Suspect]
     Indication: GASTRIC CANCER
     Dosage: LOADING DOSE GIVEN ON DAY ONE AS PER PROTOCOL.
     Route: 042
     Dates: start: 20061115
  3. TRASTUZUMAB [Suspect]
     Dosage: DOSAGE FORM REPORTED AS INFUSION.
     Route: 042
  4. CISPLATIN [Suspect]
     Indication: GASTRIC CANCER
     Dosage: DOSAGE FORM REPORTED AS INFUSION.  GIVEN ON DAY ONE EVERY THREE WEEKS.
     Route: 042
     Dates: start: 20061115
  5. METFORMIN HCL [Concomitant]
     Dosage: STARTED LONG BEFORE TRIAL MEDICATION.
  6. BENDROFLUMETHIAZID [Concomitant]
     Dosage: STARTED LONG BEFORE TRIAL MEDICATION. REPORTED AS BENDROFLUMETAZID.
  7. AMLODIPINE [Concomitant]
     Dosage: STARTED LONG BEFORE TRIAL MEDICATION.
  8. SIMVASTATIN [Concomitant]
     Dosage: STARTED LONG BEFORE TRIAL MEDICATION.
  9. ALPRAZOLAM [Concomitant]
     Dosage: STARTED LONG BEFORE TRIAL MEDICATION.
  10. INSULATARD [Concomitant]
     Dosage: STARTED LONG BEFORE TRIAL MEDICATION.

REACTIONS (1)
  - CEREBRAL INFARCTION [None]
